FAERS Safety Report 4308149-9 (Version None)
Quarter: 2004Q1

REPORT INFORMATION
  Report Type: 
  Country: None (occurrence: None)
  Receive Date: 20040301
  Receipt Date: 20030619
  Transmission Date: 20041129
  Serious: No
  Sender: FDA-Public Use
  Company Number: US-BRISTOL-MYERS SQUIBB COMPANY-12307518

PATIENT
  Age: 75 Year
  Sex: Female
  Weight: 98 kg

DRUGS (11)
  1. GLUCOPHAGE [Suspect]
     Indication: DIABETES MELLITUS
     Dosage: DURATION OF THERAPY:  ^SEVERAL YEARS^
  2. GLUCOVANCE [Suspect]
     Indication: DIABETES MELLITUS
     Route: 048
  3. DIOVAN [Concomitant]
  4. NEXIUM [Concomitant]
  5. VITAMIN E [Concomitant]
  6. VITAMIN C [Concomitant]
  7. LUTEIN [Concomitant]
  8. CALCIUM [Concomitant]
  9. BETA CAROTENE [Concomitant]
  10. ZINC SULFATE [Concomitant]
  11. LEVOXYL [Concomitant]

REACTIONS (1)
  - BLOOD GLUCOSE INCREASED [None]
